FAERS Safety Report 20646506 (Version 2)
Quarter: 2022Q2

REPORT INFORMATION
  Report Type: Report from Study
  Country: KW (occurrence: KW)
  Receive Date: 20220329
  Receipt Date: 20220406
  Transmission Date: 20220721
  Serious: Yes (Hospitalization)
  Sender: FDA-Public Use
  Company Number: KW-NOVARTISPH-NVSC2021KW285534

PATIENT
  Sex: Female

DRUGS (1)
  1. TYKERB [Suspect]
     Active Substance: LAPATINIB DITOSYLATE
     Indication: Breast cancer metastatic
     Dosage: 1250 MG, QD
     Route: 048
     Dates: start: 20210829

REACTIONS (7)
  - COVID-19 [Recovered/Resolved]
  - Helicobacter infection [Not Recovered/Not Resolved]
  - Abdominal discomfort [Not Recovered/Not Resolved]
  - Injury [Not Recovered/Not Resolved]
  - Gastritis [Not Recovered/Not Resolved]
  - Vomiting [Recovered/Resolved]
  - Stenosis [Not Recovered/Not Resolved]

NARRATIVE: CASE EVENT DATE: 20210101
